FAERS Safety Report 6642871-4 (Version None)
Quarter: 2010Q1

REPORT INFORMATION
  Report Type: 
  Country: None (occurrence: None)
  Receive Date: 20100319
  Receipt Date: 20100311
  Transmission Date: 20100710
  Serious: Yes (Hospitalization)
  Sender: FDA-Public Use
  Company Number: US-AMGEN-KDC398984

PATIENT
  Age: 49 Year
  Sex: Male
  Weight: 80.4 kg

DRUGS (3)
  1. PANITUMUMAB [Suspect]
     Indication: PANCREATIC CARCINOMA
     Dates: start: 20100118, end: 20100118
  2. FLUOROURACIL [Suspect]
     Route: 042
     Dates: start: 20100118, end: 20100128
  3. RADIATION THERAPY [Suspect]
     Dates: start: 20100118

REACTIONS (6)
  - BACK PAIN [None]
  - DECREASED APPETITE [None]
  - DEHYDRATION [None]
  - FATIGUE [None]
  - NAUSEA [None]
  - WEIGHT DECREASED [None]
